FAERS Safety Report 7944270-1 (Version None)
Quarter: 2011Q4

REPORT INFORMATION
  Report Type: 
  Country: None (occurrence: None)
  Receive Date: 20111129
  Receipt Date: 20111114
  Transmission Date: 20120403
  Serious: No
  Sender: FDA-Public Use
  Company Number: US-BIOGENIDEC-2011BI043510

PATIENT
  Age: 62 Year
  Sex: Female

DRUGS (16)
  1. LASIX [Concomitant]
     Indication: DIURETIC THERAPY
  2. DITROPAN XL [Concomitant]
     Indication: URINARY TRACT DISORDER
     Route: 048
  3. POLYETHLYN GLYCOL [Concomitant]
     Indication: PRODUCT USED FOR UNKNOWN INDICATION
     Route: 048
  4. TRAZODONE HCL [Concomitant]
     Indication: PAIN
     Route: 048
  5. ZOFRAN [Concomitant]
     Indication: NAUSEA
  6. SENNOKOT S [Concomitant]
     Indication: CONSTIPATION
     Route: 048
  7. ZOLOFT [Concomitant]
     Indication: DEPRESSION
     Route: 048
  8. ZANAFLEX [Concomitant]
     Indication: MUSCLE TIGHTNESS
     Route: 048
  9. SUPPOSITORIES [Concomitant]
     Indication: CONSTIPATION
     Route: 054
  10. ACETAMINOPHEN [Concomitant]
     Indication: PRODUCT USED FOR UNKNOWN INDICATION
     Route: 048
  11. TRAMADOL HCL [Concomitant]
     Indication: PAIN
     Route: 048
  12. TRAZODONE HCL [Concomitant]
     Indication: SEDATIVE THERAPY
     Route: 048
  13. WELLBUTRIN [Concomitant]
     Indication: DEPRESSION
     Route: 048
  14. ALDACTONE [Concomitant]
     Indication: BLOOD PRESSURE
  15. TYSABRI [Suspect]
     Indication: MULTIPLE SCLEROSIS
     Route: 042
     Dates: start: 20111114
  16. SINEMET [Concomitant]
     Indication: PRODUCT USED FOR UNKNOWN INDICATION
     Route: 048

REACTIONS (1)
  - VERTIGO [None]
